FAERS Safety Report 6554253-4 (Version None)
Quarter: 2010Q1

REPORT INFORMATION
  Report Type: 
  Country: None (occurrence: None)
  Receive Date: 20100127
  Receipt Date: 20100118
  Transmission Date: 20100710
  Serious: Yes (Hospitalization)
  Sender: FDA-Public Use
  Company Number: US-ROCHE-681092

PATIENT
  Sex: Male

DRUGS (3)
  1. BEVACIZUMAB [Suspect]
     Route: 065
  2. CETUXIMAB [Suspect]
     Route: 065
     Dates: start: 20091230, end: 20100111
  3. CISPLATIN [Suspect]
     Route: 065
     Dates: start: 20091230, end: 20100111

REACTIONS (2)
  - BLOOD AMYLASE INCREASED [None]
  - DEHYDRATION [None]
